FAERS Safety Report 18672772 (Version 1)
Quarter: 2020Q4

REPORT INFORMATION
  Report Type: Spontaneous
  Country: KR (occurrence: KR)
  Receive Date: 20201229
  Receipt Date: 20201229
  Transmission Date: 20210114
  Serious: No
  Sender: FDA-Public Use
  Company Number: KR-009507513-2012KOR010769

PATIENT
  Sex: Male

DRUGS (1)
  1. NASONEX [Suspect]
     Active Substance: MOMETASONE FUROATE
     Dosage: UNK
     Route: 048
     Dates: start: 20201220, end: 20201220

REACTIONS (4)
  - Incorrect dose administered [Unknown]
  - Diarrhoea [Recovered/Resolved]
  - Incorrect route of product administration [Unknown]
  - Abdominal pain upper [Recovered/Resolved]

NARRATIVE: CASE EVENT DATE: 20201220
